FAERS Safety Report 21000218 (Version 3)
Quarter: 2022Q3

REPORT INFORMATION
  Report Type: Spontaneous
  Country: PL (occurrence: PL)
  Receive Date: 20220623
  Receipt Date: 20220706
  Transmission Date: 20221027
  Serious: Yes (Hospitalization)
  Sender: FDA-Public Use
  Company Number: PL-LESVI-2022002640

PATIENT
  Age: 65 Year
  Sex: Male

DRUGS (6)
  1. DULOXETINE HYDROCHLORIDE [Interacting]
     Active Substance: DULOXETINE HYDROCHLORIDE
     Indication: Diabetic neuropathy
     Dosage: 60 MG, DAILY
     Route: 065
  2. METOPROLOL SUCCINATE [Interacting]
     Active Substance: METOPROLOL SUCCINATE
     Indication: Sinus tachycardia
     Dosage: 100 MG, DAILY
     Route: 065
  3. THIOCTIC ACID MEGLUMINE [Concomitant]
     Indication: Diabetic neuropathy
     Dosage: 600 MG, DAILY
     Route: 065
  4. METFORMIN [Concomitant]
     Active Substance: METFORMIN HYDROCHLORIDE
     Indication: Type 2 diabetes mellitus
     Dosage: 2000 MG, DAILY
     Route: 065
  5. POTASSIUM MALATE [Concomitant]
     Indication: Sinus tachycardia
     Dosage: UNK, UNKNOWN
     Route: 065
  6. GLICLAZIDE [Concomitant]
     Active Substance: GLICLAZIDE
     Indication: Type 2 diabetes mellitus
     Dosage: 30 MG, DAILY
     Route: 065

REACTIONS (3)
  - Bradycardia [Unknown]
  - Drug interaction [Unknown]
  - Drug level increased [Unknown]
